FAERS Safety Report 5943796-X (Version None)
Quarter: 2008Q4

REPORT INFORMATION
  Report Type: 
  Country: None (occurrence: None)
  Receive Date: 20081106
  Receipt Date: 20081029
  Transmission Date: 20090506
  Serious: Yes (Hospitalization)
  Sender: FDA-Public Use
  Company Number: FR-BAXTER-2008BH011630

PATIENT
  Age: 14 Year
  Sex: Male

DRUGS (3)
  1. GAMMAGARD S/D [Suspect]
     Indication: HYPOGAMMAGLOBULINAEMIA
     Route: 042
     Dates: start: 20081008, end: 20081009
  2. GAMMAGARD S/D [Suspect]
     Route: 042
     Dates: start: 20081008, end: 20081009
  3. ARANESP [Concomitant]
     Indication: DRUG USE FOR UNKNOWN INDICATION
     Dates: start: 20081008, end: 20081008

REACTIONS (1)
  - MENINGITIS ASEPTIC [None]
